FAERS Safety Report 19264071 (Version 1)
Quarter: 2021Q2

REPORT INFORMATION
  Report Type: Spontaneous
  Country: US (occurrence: US)
  Receive Date: 20210515
  Receipt Date: 20210515
  Transmission Date: 20210717
  Serious: Yes (Other)
  Sender: FDA-Public Use
  Company Number: None

PATIENT
  Age: 53 Year
  Sex: Male
  Weight: 85.5 kg

DRUGS (3)
  1. 30 MONTELUKAST SODIUM 10 MG TAB ACCO [Suspect]
     Active Substance: MONTELUKAST SODIUM
     Indication: ASPIRIN-EXACERBATED RESPIRATORY DISEASE
     Dosage: ?          QUANTITY:1 TABLET(S);?
     Route: 048
     Dates: start: 20190301, end: 20210419
  2. AMLODIPINE 7.5 MG [Concomitant]
  3. 30 MONTELUKAST SODIUM 10 MG TAB ACCO [Suspect]
     Active Substance: MONTELUKAST SODIUM
     Indication: MULTIPLE ALLERGIES
     Dosage: ?          QUANTITY:1 TABLET(S);?
     Route: 048
     Dates: start: 20190301, end: 20210419

REACTIONS (6)
  - Insomnia [None]
  - Irritability [None]
  - Negative thoughts [None]
  - Panic attack [None]
  - Morbid thoughts [None]
  - Anxiety [None]

NARRATIVE: CASE EVENT DATE: 20210415
